FAERS Safety Report 9543230 (Version 1)
Quarter: 2013Q3

REPORT INFORMATION
  Report Type: Spontaneous
  Country: FR (occurrence: FR)
  Receive Date: 20130923
  Receipt Date: 20130923
  Transmission Date: 20140515
  Serious: Yes (Death, Other)
  Sender: FDA-Public Use
  Company Number: FR-CELGENEUS-056-21880-13091856

PATIENT
  Sex: 0

DRUGS (3)
  1. REVLIMID [Suspect]
     Indication: PLASMA CELL MYELOMA
     Dosage: 25 MILLIGRAM
     Route: 048
  2. REVLIMID [Suspect]
     Dosage: 10 MILLIGRAM
     Route: 048
  3. REVLIMID [Suspect]
     Dosage: 15 MILLIGRAM
     Route: 048

REACTIONS (42)
  - Nasal sinus cancer [Unknown]
  - Breast cancer [Unknown]
  - Prostate cancer [Unknown]
  - Colon cancer [Unknown]
  - Oesophageal carcinoma [Unknown]
  - Renal cancer [Unknown]
  - Non-Hodgkin^s lymphoma [Unknown]
  - Hodgkin^s disease [Unknown]
  - Acute lymphocytic leukaemia [Unknown]
  - Myelodysplastic syndrome [Unknown]
  - Acute myeloid leukaemia [Unknown]
  - Skin cancer [Unknown]
  - Death [Fatal]
  - Deep vein thrombosis [Unknown]
  - Ischaemic stroke [Unknown]
  - Pulmonary embolism [Unknown]
  - Neutropenia [Unknown]
  - Febrile neutropenia [Unknown]
  - Anaemia [Unknown]
  - Thrombocytopenia [Unknown]
  - Nausea [Unknown]
  - Vomiting [Unknown]
  - Plasma cell myeloma [Unknown]
  - Constipation [Unknown]
  - Neuropathy peripheral [Unknown]
  - Diarrhoea [Unknown]
  - Fatigue [Unknown]
  - Pyrexia [Unknown]
  - Oedema peripheral [Unknown]
  - Upper respiratory tract infection [Unknown]
  - Pneumonia [Unknown]
  - Herpes zoster [Unknown]
  - Headache [Unknown]
  - Dizziness [Unknown]
  - Tremor [Unknown]
  - Rash [Unknown]
  - Decreased appetite [Unknown]
  - Insomnia [Unknown]
  - Dyspnoea [Unknown]
  - Back pain [Unknown]
  - Arthralgia [Unknown]
  - Muscle spasms [Unknown]
